FAERS Safety Report 5349484-5 (Version None)
Quarter: 2007Q2

REPORT INFORMATION
  Report Type: 
  Country: None (occurrence: None)
  Receive Date: 20070504
  Receipt Date: 20060815
  Transmission Date: 20071010
  Serious: Yes (Other)
  Sender: FDA-Public Use
  Company Number: PHEH2006US10528

PATIENT
  Age: 42 Year
  Sex: Male
  Weight: 81.6 kg

DRUGS (3)
  1. DIOVAN HCT [Suspect]
     Indication: HYPERTENSION
     Dosage: 160MG VAL/12.5 HCTZ, ORAL
     Route: 048
     Dates: start: 20060815, end: 20060815
  2. SYNTHROID [Concomitant]
  3. COMBIVENT (IPRATROPIUM BROMIDE, SALBUTAMOL) [Concomitant]

REACTIONS (7)
  - ANAPHYLACTIC SHOCK [None]
  - BLOOD PRESSURE SYSTOLIC DECREASED [None]
  - CHEST DISCOMFORT [None]
  - DYSPNOEA [None]
  - HEART RATE INCREASED [None]
  - PALPITATIONS [None]
  - URTICARIA [None]
